FAERS Safety Report 19410190 (Version 2)
Quarter: 2021Q3

REPORT INFORMATION
  Report Type: Report from Study
  Country: None (occurrence: NL)
  Receive Date: 20210614
  Receipt Date: 20210831
  Transmission Date: 20211014
  Serious: Yes (Other)
  Sender: FDA-Public Use
  Company Number: NL-ABBVIE-21K-114-3944753-00

PATIENT
  Sex: Female

DRUGS (12)
  1. REQUIP [Concomitant]
     Active Substance: ROPINIROLE HYDROCHLORIDE
     Indication: PRODUCT USED FOR UNKNOWN INDICATION
     Dosage: 2
  2. NAPROXEN. [Concomitant]
     Active Substance: NAPROXEN
     Indication: MUSCLE STRAIN
  3. PARACETAMOL [Concomitant]
     Active Substance: ACETAMINOPHEN
     Indication: PRODUCT USED FOR UNKNOWN INDICATION
  4. DUODOPA [Suspect]
     Active Substance: CARBIDOPA\LEVODOPA
     Dosage: MD: 8.5ML, CD: 3.1ML/H, ED: 2.5ML
     Route: 050
  5. VITAMIN B [Concomitant]
     Active Substance: VITAMIN B
     Indication: POLYNEUROPATHY
  6. CODEINE [Concomitant]
     Active Substance: CODEINE
     Indication: PRODUCT USED FOR UNKNOWN INDICATION
  7. DULOXETINE. [Concomitant]
     Active Substance: DULOXETINE
     Indication: BLADDER IRRITATION
  8. CORTISONE [Concomitant]
     Active Substance: CORTISONE
     Indication: OSTEOARTHRITIS
  9. MICONAZOL [Concomitant]
     Active Substance: MICONAZOLE NITRATE
     Indication: PRODUCT USED FOR UNKNOWN INDICATION
  10. DUODOPA [Suspect]
     Active Substance: CARBIDOPA\LEVODOPA
     Dosage: MD: 8.5ML, CD: 3.1ML/H, ED: 3.5ML
     Route: 050
  11. DUODOPA [Suspect]
     Active Substance: CARBIDOPA\LEVODOPA
     Indication: PARKINSON^S DISEASE
     Route: 050
     Dates: start: 20161205
  12. MOVICOLON [Concomitant]
     Active Substance: POLYETHYLENE GLYCOL 3350\POTASSIUM CHLORIDE\SODIUM BICARBONATE\SODIUM CHLORIDE
     Indication: ABNORMAL FAECES

REACTIONS (3)
  - Dyskinesia [Recovered/Resolved]
  - Cataract [Recovered/Resolved]
  - Neuralgia [Unknown]

NARRATIVE: CASE EVENT DATE: 2021
